FAERS Safety Report 7638221-7 (Version None)
Quarter: 2011Q3

REPORT INFORMATION
  Report Type: 
  Country: None (occurrence: None)
  Receive Date: 20110727
  Receipt Date: 20110718
  Transmission Date: 20111222
  Serious: Yes (Hospitalization, Other)
  Sender: FDA-Public Use
  Company Number: FR-JNJFOC-20110708084

PATIENT

DRUGS (3)
  1. RISPERDAL [Suspect]
     Indication: PRODUCT USED FOR UNKNOWN INDICATION
     Route: 048
     Dates: start: 20110413, end: 20110413
  2. VALIUM [Concomitant]
     Route: 065
  3. ZOLPIDEM [Concomitant]
     Route: 065

REACTIONS (4)
  - SOMNOLENCE [None]
  - SUICIDE ATTEMPT [None]
  - OVERDOSE [None]
  - CONFUSIONAL STATE [None]
